FAERS Safety Report 7763486-0 (Version None)
Quarter: 2011Q3

REPORT INFORMATION
  Report Type: 
  Country: None (occurrence: None)
  Receive Date: 20110920
  Receipt Date: 20110915
  Transmission Date: 20111222
  Serious: Yes (Other)
  Sender: FDA-Public Use
  Company Number: US-PFIZER INC-2011219641

PATIENT

DRUGS (1)
  1. DILANTIN-125 [Suspect]
     Dosage: UNK
     Route: 048

REACTIONS (1)
  - BRADYCARDIA [None]
